FAERS Safety Report 7384443-2 (Version None)
Quarter: 2011Q1

REPORT INFORMATION
  Report Type: 
  Country: None (occurrence: None)
  Receive Date: 20110330
  Receipt Date: 20110324
  Transmission Date: 20110831
  Serious: Yes (Hospitalization)
  Sender: FDA-Public Use
  Company Number: SE-BRISTOL-MYERS SQUIBB COMPANY-15631815

PATIENT
  Age: 79 Year
  Sex: Female

DRUGS (3)
  1. FRAGMIN [Suspect]
     Dosage: SOLUTION FOR INJECTION
     Dates: start: 20101101, end: 20101209
  2. HYDREA [Suspect]
     Indication: POLYCYTHAEMIA VERA
     Route: 048
     Dates: end: 20101209
  3. INNOHEP [Suspect]
     Dosage: SOLUTION FOR INJECTION
     Dates: start: 20101201, end: 20101209

REACTIONS (2)
  - THROMBOCYTOPENIA [None]
  - URINARY TRACT INFECTION [None]
